FAERS Safety Report 19700878 (Version 2)
Quarter: 2021Q3

REPORT INFORMATION
  Report Type: Report from Study
  Country: CN (occurrence: CN)
  Receive Date: 20210813
  Receipt Date: 20210830
  Transmission Date: 20211014
  Serious: Yes (Death, Hospitalization)
  Sender: FDA-Public Use
  Company Number: CN-PFIZER INC-202101017006

PATIENT
  Age: 52 Year
  Sex: Male
  Weight: 67 kg

DRUGS (3)
  1. BLINDED THERAPY [Suspect]
     Active Substance: INVESTIGATIONAL PRODUCT
     Indication: LUNG SQUAMOUS CELL CARCINOMA STAGE IV
     Dosage: 5 MG/KG, EVERY 3 WEEKS
     Route: 041
     Dates: start: 20210716, end: 20210802
  2. ANZATAX (PACLITAXEL) [Suspect]
     Active Substance: PACLITAXEL
     Indication: LUNG SQUAMOUS CELL CARCINOMA STAGE IV
     Dosage: BASX175, EVERY 3 WEEKS
     Route: 041
     Dates: start: 20210717, end: 20210802
  3. BO BEI [Suspect]
     Active Substance: CARBOPLATIN
     Indication: LUNG SQUAMOUS CELL CARCINOMA STAGE IV
     Dosage: AUC5, EVERY 3 WEEKS
     Route: 041
     Dates: start: 20210717, end: 20210802

REACTIONS (3)
  - Death [Fatal]
  - Tachypnoea [Not Recovered/Not Resolved]
  - Pyrexia [Not Recovered/Not Resolved]

NARRATIVE: CASE EVENT DATE: 20210726
